FAERS Safety Report 18753235 (Version 2)
Quarter: 2021Q1

REPORT INFORMATION
  Report Type: Spontaneous
  Country: US (occurrence: US)
  Receive Date: 20210118
  Receipt Date: 20210222
  Transmission Date: 20210419
  Serious: No
  Sender: FDA-Public Use
  Company Number: US-ASTRAZENECA-2021A004516

PATIENT

DRUGS (1)
  1. BREZTRI AEROSPHERE [Suspect]
     Active Substance: BUDESONIDE\FORMOTEROL\GLYCOPYRRONIUM
     Indication: RESPIRATORY DISTRESS
     Dosage: 2 PUFFS TWICE DAILY
     Route: 055

REACTIONS (3)
  - Off label use [Unknown]
  - Oesophagitis [Unknown]
  - Oral candidiasis [Unknown]
